FAERS Safety Report 24756425 (Version 1)
Quarter: 2024Q4

REPORT INFORMATION
  Report Type: Spontaneous
  Country: CA (occurrence: CA)
  Receive Date: 20241220
  Receipt Date: 20241220
  Transmission Date: 20250114
  Serious: Yes (Hospitalization, Other)
  Sender: BOEHRINGER INGELHEIM
  Company Number: CA-ASPEN-GLO2020CA004146

PATIENT
  Age: 54 Year
  Sex: Male
  Weight: 97 kg

DRUGS (5)
  1. JARDIANCE [Suspect]
     Active Substance: EMPAGLIFLOZIN
     Indication: Type 2 diabetes mellitus
     Dosage: DAILY DOSE: 25 MILLIGRAM(S)
     Route: 048
  2. PROPOFOL [Suspect]
     Active Substance: PROPOFOL
     Indication: Sedative therapy
  3. NPH INSULIN [Suspect]
     Active Substance: INSULIN BEEF
     Indication: Type 2 diabetes mellitus
     Dosage: 13U
     Route: 058
  4. NPH INSULIN [Suspect]
     Active Substance: INSULIN BEEF
     Dosage: 15U
     Route: 058
  5. ISOPHANE INSULIN [Concomitant]
     Active Substance: INSULIN NOS
     Indication: Type 2 diabetes mellitus
     Route: 058

REACTIONS (3)
  - Euglycaemic diabetic ketoacidosis [Recovered/Resolved]
  - Metabolic acidosis [Recovered/Resolved]
  - Respiratory acidosis [Recovered/Resolved]
